FAERS Safety Report 8788137 (Version 1)
Quarter: 2012Q4

REPORT INFORMATION
  Report Type: 
  Country: IT (occurrence: IT)
  Receive Date: 20120914
  Receipt Date: 20120914
  Transmission Date: 20130627
  Serious: Yes (Other)
  Sender: FDA-Public Use
  Company Number: IT-PFIZER INC-2009217430

PATIENT
  Age: 61 Year
  Sex: Male

DRUGS (2)
  1. SUTENT [Suspect]
     Indication: RENAL CELL CARCINOMA
     Dosage: 50 mg, 1x/day
     Route: 048
     Dates: start: 20080120, end: 20090317
  2. AREDIA [Concomitant]
     Dosage: 90 mg, every 28 days
     Route: 042
     Dates: start: 20080911, end: 20090520

REACTIONS (2)
  - Sialoadenitis [Recovered/Resolved]
  - Soft tissue infection [Recovered/Resolved]
